FAERS Safety Report 19235419 (Version 5)
Quarter: 2022Q1

REPORT INFORMATION
  Report Type: Spontaneous
  Country: US (occurrence: US)
  Receive Date: 20210510
  Receipt Date: 20220226
  Transmission Date: 20220423
  Serious: No
  Sender: FDA-Public Use
  Company Number: US-BRISTOL-MYERS SQUIBB COMPANY-BMS-2021-044050

PATIENT
  Age: 62 Year
  Sex: Female

DRUGS (3)
  1. ORENCIA [Suspect]
     Active Substance: ABATACEPT
     Indication: Rheumatoid arthritis
     Dosage: 125 MILLIGRAM, QWK
     Route: 058
     Dates: start: 20200616
  2. ORENCIA [Suspect]
     Active Substance: ABATACEPT
     Indication: Osteoarthritis
     Dosage: 125 MILLIGRAM, QWK
     Route: 058
     Dates: start: 20200915
  3. ORENCIA [Suspect]
     Active Substance: ABATACEPT
     Indication: Myalgia
     Dosage: 125 MILLIGRAM, QWK
     Route: 058
     Dates: start: 20201029

REACTIONS (4)
  - Arthralgia [Unknown]
  - Joint swelling [Unknown]
  - Ear infection [Unknown]
  - Nasopharyngitis [Unknown]

NARRATIVE: CASE EVENT DATE: 20210401
